FAERS Safety Report 16310352 (Version 2)
Quarter: 2019Q2

REPORT INFORMATION
  Report Type: Report from Study
  Country: US (occurrence: US)
  Receive Date: 20190514
  Receipt Date: 20190523
  Transmission Date: 20190711
  Serious: Yes (Death, Other)
  Sender: FDA-Public Use
  Company Number: US-ACTELION-A-NJ2019-189390

PATIENT
  Age: 76 Year
  Sex: Female
  Weight: 87.98 kg

DRUGS (5)
  1. UPTRAVI [Suspect]
     Active Substance: SELEXIPAG
     Indication: PULMONARY ARTERIAL HYPERTENSION
     Dosage: 1000 MCG, BID
     Route: 048
  2. ADCIRCA [Concomitant]
     Active Substance: TADALAFIL
  3. UPTRAVI [Suspect]
     Active Substance: SELEXIPAG
     Dosage: 800 MCG, BID
     Route: 048
  4. OPSUMIT [Suspect]
     Active Substance: MACITENTAN
     Indication: PULMONARY ARTERIAL HYPERTENSION
     Dosage: UNK
     Route: 048
     Dates: start: 20180501, end: 20190507
  5. WARFARIN [Concomitant]
     Active Substance: WARFARIN

REACTIONS (18)
  - Vision blurred [Unknown]
  - Hypotension [Unknown]
  - Urinary tract infection [Unknown]
  - Dyspnoea [Unknown]
  - Blood pressure decreased [Unknown]
  - Cardiac arrest [Fatal]
  - Musculoskeletal pain [Unknown]
  - Unevaluable event [Unknown]
  - Dizziness [Unknown]
  - Headache [Unknown]
  - Asthenia [Unknown]
  - Eye disorder [Unknown]
  - Lethargy [Unknown]
  - Myocardial infarction [Fatal]
  - Nausea [Unknown]
  - Photophobia [Unknown]
  - Fatigue [Unknown]
  - Myalgia [Unknown]

NARRATIVE: CASE EVENT DATE: 20190307
